FAERS Safety Report 7248804-4 (Version None)
Quarter: 2011Q1

REPORT INFORMATION
  Report Type: 
  Country: None (occurrence: None)
  Receive Date: 20110128
  Receipt Date: 20110119
  Transmission Date: 20110831
  Serious: Yes (Death, Hospitalization)
  Sender: FDA-Public Use
  Company Number: BR-ELI_LILLY_AND_COMPANY-BR201101004793

PATIENT
  Sex: Female
  Weight: 43.3 kg

DRUGS (10)
  1. DICLOFENACO SODICO [Concomitant]
     Indication: BACK PAIN
     Dosage: UNK, UNKNOWN
     Route: 065
     Dates: start: 20070101
  2. DRAMIN B-6 [Concomitant]
     Indication: NAUSEA
     Dosage: UNK, UNKNOWN
     Route: 065
     Dates: start: 20060101
  3. VITAMIN B-12 [Concomitant]
     Indication: SUPPLEMENTATION THERAPY
     Dosage: 1000 UG, OTHER
     Route: 030
     Dates: start: 20100707, end: 20110112
  4. ACETAMINOPHEN [Concomitant]
     Indication: BACK PAIN
     Dosage: UNK, UNKNOWN
     Route: 065
     Dates: start: 20070101
  5. CAFEINA [Concomitant]
     Indication: BACK PAIN
     Dosage: UNK, UNKNOWN
     Route: 065
     Dates: start: 20070101
  6. FOLIC ACID [Concomitant]
     Indication: SUPPLEMENTATION THERAPY
     Dosage: 400 UG, DAILY (1/D)
     Route: 048
     Dates: start: 20100707, end: 20110119
  7. DEXAMETHASONE [Concomitant]
     Indication: SUPPLEMENTATION THERAPY
     Dosage: 4 MG, 2/D
     Route: 048
     Dates: start: 20100712, end: 20110112
  8. OMEPRAZOLE [Concomitant]
     Indication: NAUSEA
     Dosage: UNK, UNKNOWN
     Route: 065
     Dates: start: 20101209
  9. PEMETREXED [Suspect]
     Indication: NON-SMALL CELL LUNG CANCER
     Dosage: 500 MG/M2, OTHER
     Route: 042
     Dates: start: 20100713, end: 20110120
  10. CARISOPRODOL [Concomitant]
     Indication: BACK PAIN
     Dosage: UNK, UNKNOWN
     Route: 065
     Dates: start: 20070101

REACTIONS (2)
  - DEHYDRATION [None]
  - FEBRILE NEUTROPENIA [None]
